FAERS Safety Report 8985559 (Version 3)
Quarter: 2013Q1

REPORT INFORMATION
  Report Type: Spontaneous
  Country: JP (occurrence: JP)
  Receive Date: 20121226
  Receipt Date: 20130122
  Transmission Date: 20140127
  Serious: Yes (Other)
  Sender: FDA-Public Use
  Company Number: JP-PFIZER INC-2012322255

PATIENT
  Age: 5 Year
  Sex: Male
  Weight: 16 kg

DRUGS (2)
  1. GENOTROPIN GOQUICK [Suspect]
     Indication: DWARFISM
     Dosage: 0.65 MG, 1X/DAY
     Route: 058
     Dates: start: 20120322, end: 20120831
  2. GENOTROPIN GOQUICK [Suspect]
     Dosage: 1.0 MG, 1X/DAY
     Route: 058
     Dates: start: 20120901

REACTIONS (1)
  - Hepatomegaly [Not Recovered/Not Resolved]
